FAERS Safety Report 17727331 (Version 2)
Quarter: 2020Q2

REPORT INFORMATION
  Report Type: Spontaneous
  Country: JP (occurrence: JP)
  Receive Date: 20200430
  Receipt Date: 20200501
  Transmission Date: 20200714
  Serious: Yes (Hospitalization, Other)
  Sender: FDA-Public Use
  Company Number: JP-ENDO PHARMACEUTICALS INC-2020-003474

PATIENT
  Age: 39 Year
  Sex: Female

DRUGS (7)
  1. DULOXETINE. [Concomitant]
     Active Substance: DULOXETINE
     Indication: PRODUCT USED FOR UNKNOWN INDICATION
     Dosage: 40 MG, UNKNOWN
     Route: 065
  2. FLUNITRAZEPAM [Concomitant]
     Active Substance: FLUNITRAZEPAM
     Indication: PRODUCT USED FOR UNKNOWN INDICATION
     Dosage: 2 MG, UNKNOWN
     Route: 065
  3. ZOLPIDEM TARTRATE. [Suspect]
     Active Substance: ZOLPIDEM TARTRATE
     Dosage: 60-100 MG, UNK
     Route: 065
  4. ZOLPIDEM TARTRATE. [Suspect]
     Active Substance: ZOLPIDEM TARTRATE
     Indication: INSOMNIA
     Dosage: 10 MG, DAILY
     Route: 065
  5. MIANSERIN [Concomitant]
     Active Substance: MIANSERIN
     Indication: PRODUCT USED FOR UNKNOWN INDICATION
     Dosage: 50 MG, UNKNOWN
     Route: 065
  6. ZOLPIDEM TARTRATE. [Suspect]
     Active Substance: ZOLPIDEM TARTRATE
     Dosage: }500 MG, DAILY
     Route: 065
  7. BROTIZOLAM [Concomitant]
     Active Substance: BROTIZOLAM
     Indication: PRODUCT USED FOR UNKNOWN INDICATION
     Dosage: 0.25 MG, UNKNOWN
     Route: 065

REACTIONS (3)
  - Drug diversion [Unknown]
  - Withdrawal syndrome [Recovered/Resolved]
  - Drug abuse [Recovered/Resolved]
